FAERS Safety Report 12964931 (Version 1)
Quarter: 2016Q4

REPORT INFORMATION
  Report Type: Spontaneous
  Country: GB (occurrence: GB)
  Receive Date: 20161122
  Receipt Date: 20161122
  Transmission Date: 20170207
  Serious: Yes (Life-Threatening, Other)
  Sender: FDA-Public Use
  Company Number: GB-PFIZER INC-2016539972

PATIENT
  Age: 74 Year
  Sex: Female
  Weight: 48 kg

DRUGS (3)
  1. METHYLMETHACRYLATE [Suspect]
     Active Substance: METHYL METHACRYLATE
     Indication: HIP ARTHROPLASTY
     Dosage: UNK
     Route: 014
     Dates: start: 20161104, end: 20161104
  2. RAMIPRIL. [Concomitant]
     Active Substance: RAMIPRIL
     Dosage: UNK
  3. GENTAMICIN SULFATE. [Suspect]
     Active Substance: GENTAMICIN SULFATE
     Indication: HIP ARTHROPLASTY
     Dosage: UNK
     Route: 014
     Dates: start: 20161104, end: 20161104

REACTIONS (1)
  - Supraventricular tachycardia [Recovered/Resolved]

NARRATIVE: CASE EVENT DATE: 20161104
